FAERS Safety Report 18156303 (Version 1)
Quarter: 2020Q3

REPORT INFORMATION
  Report Type: Spontaneous
  Country: US (occurrence: US)
  Receive Date: 20200815
  Receipt Date: 20200815
  Transmission Date: 20201103
  Serious: Yes (Life-Threatening)
  Sender: FDA-Public Use
  Company Number: None

PATIENT
  Age: 48 Year
  Sex: Male
  Weight: 112.5 kg

DRUGS (5)
  1. LIBRE [Concomitant]
  2. LISINOPRIL. [Concomitant]
     Active Substance: LISINOPRIL
  3. PRAVASTATIN. [Suspect]
     Active Substance: PRAVASTATIN
     Route: 048
     Dates: start: 20200110, end: 20200110
  4. OMEPRAZOLE. [Concomitant]
     Active Substance: OMEPRAZOLE
  5. FAMOTIDINE. [Concomitant]
     Active Substance: FAMOTIDINE

REACTIONS (1)
  - Blood glucose abnormal [None]

NARRATIVE: CASE EVENT DATE: 20200110
